FAERS Safety Report 5762586-4 (Version None)
Quarter: 2008Q2

REPORT INFORMATION
  Report Type: 
  Country: None (occurrence: None)
  Receive Date: 20080609
  Receipt Date: 20080528
  Transmission Date: 20081010
  Serious: Yes (Hospitalization, Other)
  Sender: FDA-Public Use
  Company Number: US-JNJFOC-20080402599

PATIENT
  Sex: Female
  Weight: 47.17 kg

DRUGS (2)
  1. REMICADE [Suspect]
     Indication: RHEUMATOID ARTHRITIS
     Dosage: INFUSIONS FOR 5-6 YEARS
     Route: 042
  2. TYLENOL (CAPLET) [Concomitant]
     Indication: RHEUMATOID ARTHRITIS

REACTIONS (2)
  - LUNG OPERATION [None]
  - TUBERCULOSIS [None]
